FAERS Safety Report 4525975-1 (Version None)
Quarter: 2004Q4

REPORT INFORMATION
  Report Type: 
  Country: None (occurrence: None)
  Receive Date: 20041207
  Receipt Date: 20041126
  Transmission Date: 20050328
  Serious: Yes (Death)
  Sender: FDA-Public Use
  Company Number: B0358578A

PATIENT

DRUGS (4)
  1. ALKERAN [Suspect]
     Dosage: 50 MG/M2/ PER DAY/ INTRAVENOUS
     Route: 042
  2. THIOTEPA [Suspect]
     Dosage: 250 MG/M2/ PER DAY/ INTRAVENOUS
     Route: 042
  3. CARBOPLATIN [Suspect]
     Dosage: PER DAY/ INTRAVENOUS
     Route: 042
  4. STEM CELL TRANSPLANT (STEM CELL TRANSPLANT) [Suspect]

REACTIONS (1)
  - COMPLETED SUICIDE [None]
